FAERS Safety Report 9093909 (Version 1)
Quarter: 2013Q1

REPORT INFORMATION
  Report Type: Spontaneous
  Country: US (occurrence: None)
  Receive Date: 20130214
  Receipt Date: 20130214
  Transmission Date: 20140127
  Serious: No
  Sender: FDA-Public Use
  Company Number: None

PATIENT
  Age: 66 Year
  Sex: Female
  Weight: 87.09 kg

DRUGS (3)
  1. LEVOFLOXACIN [Suspect]
     Indication: HAEMOPTYSIS
     Route: 048
     Dates: start: 20121014, end: 20121017
  2. LEVOFLOXACIN [Suspect]
     Indication: PURULENCE
     Route: 048
     Dates: start: 20121014, end: 20121017
  3. PROMETHAZINE WITH CODEINE [Concomitant]

REACTIONS (1)
  - Arthralgia [None]
